FAERS Safety Report 6993957-6 (Version None)
Quarter: 2010Q3

REPORT INFORMATION
  Report Type: 
  Country: None (occurrence: None)
  Receive Date: 20100917
  Receipt Date: 20090721
  Transmission Date: 20110219
  Serious: Yes (Other)
  Sender: FDA-Public Use
  Company Number: US-ASTRAZENECA-2007UW05034

PATIENT
  Age: 17557 Day
  Sex: Male
  Weight: 93.4 kg

DRUGS (9)
  1. SEROQUEL [Suspect]
     Route: 048
     Dates: start: 20050511
  2. LEXAPRO [Concomitant]
     Dates: start: 20040107
  3. VIAGRA [Concomitant]
     Dosage: 50 MG TO 100 MG
     Dates: start: 20040115
  4. LEVOXYL [Concomitant]
     Dates: start: 20040226
  5. LORAZEPAM [Concomitant]
     Dates: start: 20040126
  6. NEXIUM [Concomitant]
     Dates: start: 20040312
  7. HYDROCODONE BITARTRATE AND ACETAMINOPHEN [Concomitant]
     Dates: start: 20050207
  8. LIPITOR [Concomitant]
     Dates: start: 20050328
  9. CLINDAMYCIN HCL [Concomitant]
     Dates: start: 20050419

REACTIONS (3)
  - DIABETES MELLITUS [None]
  - KETOACIDOSIS [None]
  - PANCREATITIS [None]
